FAERS Safety Report 7863099-6 (Version None)
Quarter: 2011Q4

REPORT INFORMATION
  Report Type: 
  Country: None (occurrence: None)
  Receive Date: 20111027
  Receipt Date: 20101129
  Transmission Date: 20120403
  Serious: No
  Sender: FDA-Public Use
  Company Number: US-AMGEN-KDL434327

PATIENT
  Age: 54 Year
  Sex: Male

DRUGS (2)
  1. ENBREL [Suspect]
     Indication: RHEUMATOID ARTHRITIS
     Dosage: 50 MG, QWK
     Route: 058
     Dates: start: 20080714
  2. ENBREL [Suspect]
     Dosage: 50 MG, QWK
     Route: 058
     Dates: start: 20080714

REACTIONS (6)
  - FEELING ABNORMAL [None]
  - DIARRHOEA [None]
  - SOMNOLENCE [None]
  - INSOMNIA [None]
  - INCORRECT STORAGE OF DRUG [None]
  - PRODUCT CONTAINER SEAL ISSUE [None]
